FAERS Safety Report 18130702 (Version 1)
Quarter: 2020Q3

REPORT INFORMATION
  Report Type: Spontaneous
  Country: HN (occurrence: HN)
  Receive Date: 20200810
  Receipt Date: 20200810
  Transmission Date: 20201103
  Serious: Yes (Other)
  Sender: FDA-Public Use
  Company Number: HN-PFIZER INC-2020300632

PATIENT
  Age: 68 Year
  Sex: Female

DRUGS (1)
  1. LIPITOR [Suspect]
     Active Substance: ATORVASTATIN CALCIUM
     Dosage: 1 DF, DAILY (AT NIGHT)
     Route: 048

REACTIONS (4)
  - Cardiac disorder [Unknown]
  - Diabetes mellitus [Unknown]
  - Hypertension [Unknown]
  - Cardiovascular disorder [Unknown]
